FAERS Safety Report 4759042-9 (Version None)
Quarter: 2005Q3

REPORT INFORMATION
  Report Type: 
  Country: None (occurrence: None)
  Receive Date: 20050901
  Receipt Date: 20050805
  Transmission Date: 20060218
  Serious: Yes (Hospitalization)
  Sender: FDA-Public Use
  Company Number: JP-GLAXOSMITHKLINE-B0390091A

PATIENT
  Age: 76 Year
  Sex: Male
  Weight: 59 kg

DRUGS (11)
  1. VALTREX [Suspect]
     Indication: HERPES ZOSTER
     Dosage: 1000MG TWICE PER DAY
     Route: 048
     Dates: start: 20050802, end: 20050802
  2. PANALDINE [Concomitant]
     Indication: ANGINA PECTORIS
     Dosage: 100MG PER DAY
     Route: 048
  3. ASPIRIN [Concomitant]
     Indication: ANGINA PECTORIS
     Dosage: 100MG PER DAY
     Route: 048
  4. NITOROL R [Concomitant]
     Indication: ANGINA PECTORIS
     Dosage: 40MG PER DAY
     Route: 048
  5. NITROGLYCERIN [Concomitant]
     Indication: ANGINA PECTORIS
     Route: 062
  6. ARTIST [Concomitant]
     Indication: HYPERTENSION
     Dosage: 10MG PER DAY
     Route: 048
  7. CARDENALIN [Concomitant]
     Indication: HYPERTENSION
     Dosage: 1MG PER DAY
     Route: 048
  8. SIGMART [Concomitant]
     Indication: ANGINA PECTORIS
     Dosage: 15MG PER DAY
     Route: 048
  9. NORVASC [Concomitant]
     Indication: HYPERTENSION
     Dosage: 5MG PER DAY
     Route: 048
  10. COMBEC [Concomitant]
     Indication: HERPES ZOSTER
     Route: 061
     Dates: start: 20050802
  11. CEFOTIAM HYDROCHLORIDE [Concomitant]

REACTIONS (12)
  - ASPIRATION [None]
  - CHOKING [None]
  - DELIRIUM [None]
  - DIZZINESS [None]
  - DYSARTHRIA [None]
  - FATIGUE [None]
  - HAEMATEMESIS [None]
  - HALLUCINATION [None]
  - NAUSEA [None]
  - PRODUCTIVE COUGH [None]
  - STOMACH DISCOMFORT [None]
  - VOMITING [None]
